FAERS Safety Report 11538875 (Version 1)
Quarter: 2015Q3

REPORT INFORMATION
  Report Type: Spontaneous
  Country: US (occurrence: None)
  Receive Date: 20150922
  Receipt Date: 20150922
  Transmission Date: 20151125
  Serious: Yes (Disabling)
  Sender: FDA-Public Use
  Company Number: None

PATIENT
  Age: 56 Year
  Sex: Female
  Weight: 97.52 kg

DRUGS (4)
  1. TYLENOL [Concomitant]
     Active Substance: ACETAMINOPHEN
  2. BUPROPION. [Suspect]
     Active Substance: BUPROPION
     Indication: DEPRESSION
     Route: 048
     Dates: start: 20150820, end: 20150915
  3. MUCINEX [Concomitant]
     Active Substance: GUAIFENESIN
  4. COUGH DROPS [Concomitant]

REACTIONS (9)
  - Pain [None]
  - Product substitution issue [None]
  - Constipation [None]
  - Abdominal discomfort [None]
  - Nausea [None]
  - Diarrhoea [None]
  - Product quality issue [None]
  - Flatulence [None]
  - Drug ineffective [None]

NARRATIVE: CASE EVENT DATE: 20150820
